FAERS Safety Report 6678772-5 (Version None)
Quarter: 2010Q2

REPORT INFORMATION
  Report Type: 
  Country: None (occurrence: None)
  Receive Date: 20100413
  Receipt Date: 20100412
  Transmission Date: 20101027
  Serious: Yes (Hospitalization, Other)
  Sender: FDA-Public Use
  Company Number: US-JNJFOC-20090608917

PATIENT
  Sex: Female
  Weight: 71.22 kg

DRUGS (1)
  1. LEVAQUIN [Suspect]
     Indication: SURGERY
     Route: 048

REACTIONS (4)
  - ATRIAL FIBRILLATION [None]
  - HYPERTENSION [None]
  - MUSCULAR WEAKNESS [None]
  - TACHYCARDIA [None]
